FAERS Safety Report 17358294 (Version 2)
Quarter: 2020Q1

REPORT INFORMATION
  Report Type: Report from Study
  Country: None (occurrence: CO)
  Receive Date: 20200201
  Receipt Date: 20200225
  Transmission Date: 20200409
  Serious: Yes (Other)
  Sender: FDA-Public Use
  Company Number: CO-ABBVIE-20K-036-3260048-00

PATIENT
  Age: 61 Year
  Sex: Female
  Weight: 36 kg

DRUGS (1)
  1. ZEMPLAR [Suspect]
     Active Substance: PARICALCITOL
     Indication: HYPERPARATHYROIDISM SECONDARY
     Route: 042
     Dates: start: 20170727, end: 20191120

REACTIONS (9)
  - Bone pain [Recovering/Resolving]
  - Headache [Not Recovered/Not Resolved]
  - Haematoma [Recovering/Resolving]
  - Swelling [Recovering/Resolving]
  - Internal haemorrhage [Recovering/Resolving]
  - Thyroid operation [Recovering/Resolving]
  - Fall [Recovering/Resolving]
  - Choking [Recovering/Resolving]
  - Lower limb fracture [Recovering/Resolving]

NARRATIVE: CASE EVENT DATE: 201812
